FAERS Safety Report 19035514 (Version 1)
Quarter: 2021Q1

REPORT INFORMATION
  Report Type: Report from Study
  Country: US (occurrence: US)
  Receive Date: 20210320
  Receipt Date: 20210320
  Transmission Date: 20210420
  Serious: Yes (Hospitalization)
  Sender: FDA-Public Use
  Company Number: US-TAKEDA-US201821201

PATIENT
  Age: 71 Year
  Sex: Male
  Weight: 95.24 kg

DRUGS (8)
  1. ELAVIL [Concomitant]
     Active Substance: AMITRIPTYLINE HYDROCHLORIDE
     Indication: MALABSORPTION
     Dosage: 25 MILLIGRAM
     Route: 048
     Dates: start: 20171004
  2. TEDUGLUTIDE [Suspect]
     Active Substance: TEDUGLUTIDE
     Indication: SHORT-BOWEL SYNDROME
     Dosage: STUDY DRUG NOT ADMINISTERED
     Route: 065
  3. TEDUGLUTIDE [Suspect]
     Active Substance: TEDUGLUTIDE
     Indication: SHORT-BOWEL SYNDROME
     Dosage: STUDY DRUG NOT ADMINISTERED
     Route: 065
  4. TEDUGLUTIDE [Suspect]
     Active Substance: TEDUGLUTIDE
     Indication: SHORT-BOWEL SYNDROME
     Dosage: STUDY DRUG NOT ADMINISTERED
     Route: 065
  5. CREON [Concomitant]
     Active Substance: PANCRELIPASE AMYLASE\PANCRELIPASE LIPASE\PANCRELIPASE PROTEASE
     Indication: FATTY ACID DEFICIENCY
     Dosage: 24000 UNITS
     Route: 048
     Dates: start: 20180328
  6. TEDUGLUTIDE [Suspect]
     Active Substance: TEDUGLUTIDE
     Indication: SHORT-BOWEL SYNDROME
     Dosage: STUDY DRUG NOT ADMINISTERED
     Route: 065
  7. IMODIUM [Concomitant]
     Active Substance: LOPERAMIDE HYDROCHLORIDE
     Indication: SHORT-BOWEL SYNDROME
     Dosage: 4 MILLIGRAM
     Route: 048
     Dates: start: 20171004
  8. CARAFATE [Concomitant]
     Active Substance: SUCRALFATE
     Indication: SHORT-BOWEL SYNDROME
     Dosage: 1 GRAM, QID
     Route: 048
     Dates: start: 20170620

REACTIONS (3)
  - Renal failure [Recovered/Resolved with Sequelae]
  - Device issue [Recovered/Resolved]
  - Liver function test increased [Recovered/Resolved]

NARRATIVE: CASE EVENT DATE: 20180426
